FAERS Safety Report 5481094-1 (Version None)
Quarter: 2007Q4

REPORT INFORMATION
  Report Type: 
  Country: None (occurrence: None)
  Receive Date: 20071003
  Receipt Date: 20070925
  Transmission Date: 20080405
  Serious: Yes (Hospitalization)
  Sender: FDA-Public Use
  Company Number: LTI2007A00019

PATIENT
  Age: 76 Year
  Sex: Male

DRUGS (11)
  1. ACTOS [Suspect]
     Indication: TYPE 2 DIABETES MELLITUS
     Dosage: 30 MG (30 MG, 1 IN 1 D) ORAL
     Route: 048
     Dates: start: 20050110, end: 20060523
  2. GLUCOPHAGE [Concomitant]
  3. AMARYL [Concomitant]
  4. TAREG (VALSARTAN) [Concomitant]
  5. PLAVIX [Concomitant]
  6. LASIX [Concomitant]
  7. ATORVASTATIN CALCIUM [Concomitant]
  8. AMLODIPINE BESYLATE [Concomitant]
  9. ASPIRIN [Concomitant]
  10. LERCANIDIPINE [Concomitant]
  11. BCG (BCG VACCINE) [Concomitant]

REACTIONS (23)
  - ANAEMIA [None]
  - AORTIC STENOSIS [None]
  - AORTIC VALVE CALCIFICATION [None]
  - AORTIC VALVE STENOSIS [None]
  - ATRIAL FIBRILLATION [None]
  - ATRIOVENTRICULAR BLOCK FIRST DEGREE [None]
  - BENIGN PROSTATIC HYPERPLASIA [None]
  - CARDIAC FAILURE [None]
  - CARDIAC MURMUR [None]
  - CONDITION AGGRAVATED [None]
  - CREPITATIONS [None]
  - GLYCOSYLATED HAEMOGLOBIN INCREASED [None]
  - HAPTOGLOBIN DECREASED [None]
  - HEPATOJUGULAR REFLUX [None]
  - LEFT ATRIAL DILATATION [None]
  - LEFT VENTRICULAR HYPERTROPHY [None]
  - MITRAL VALVE INCOMPETENCE [None]
  - ORTHOPNOEA [None]
  - PULMONARY HYPERTENSION [None]
  - RENAL FAILURE [None]
  - SYNCOPE [None]
  - VENTRICULAR TACHYCARDIA [None]
  - WHEEZING [None]
